FAERS Safety Report 24012778 (Version 1)
Quarter: 2024Q2

REPORT INFORMATION
  Report Type: Spontaneous
  Country: SE (occurrence: SE)
  Receive Date: 20240626
  Receipt Date: 20240626
  Transmission Date: 20240716
  Serious: Yes (Other)
  Sender: FDA-Public Use
  Company Number: SE-NOVOPROD-1241790

PATIENT
  Sex: Male

DRUGS (1)
  1. RYBELSUS [Suspect]
     Active Substance: SEMAGLUTIDE
     Indication: Product used for unknown indication
     Dosage: UNK
     Dates: end: 20220830

REACTIONS (3)
  - Pancreatitis [Unknown]
  - Intestinal perforation [Unknown]
  - Abdominal infection [Unknown]

NARRATIVE: CASE EVENT DATE: 20220601
